FAERS Safety Report 12162679 (Version 1)
Quarter: 2016Q1

REPORT INFORMATION
  Report Type: Spontaneous
  Country: AT (occurrence: AT)
  Receive Date: 20160309
  Receipt Date: 20160309
  Transmission Date: 20160526
  Serious: Yes (Other)
  Sender: FDA-Public Use
  Company Number: PHHY2016AT030787

PATIENT
  Age: 51 Year
  Sex: Female

DRUGS (2)
  1. ZOLEDRONATE [Suspect]
     Active Substance: ZOLEDRONIC ACID
     Indication: BREAST CANCER FEMALE
     Dosage: 4 MG, EVERY 6 MONTHS (TOTAL 28 MG)
     Route: 042
  2. GOSERELIN [Concomitant]
     Active Substance: GOSERELIN
     Indication: BREAST CANCER FEMALE
     Dosage: 3.6 MG, UNK
     Route: 065

REACTIONS (3)
  - Dental fistula [Unknown]
  - Osteonecrosis of jaw [Unknown]
  - Osteosclerosis [Unknown]
